FAERS Safety Report 8185073-5 (Version None)
Quarter: 2012Q1

REPORT INFORMATION
  Report Type: 
  Country: None (occurrence: None)
  Receive Date: 20120305
  Receipt Date: 20120228
  Transmission Date: 20120608
  Serious: Yes (Other)
  Sender: FDA-Public Use
  Company Number: US-PFIZER INC-2012053055

PATIENT
  Sex: Female
  Weight: 53.968 kg

DRUGS (7)
  1. BUMEX [Concomitant]
     Dosage: UNK
  2. LYRICA [Suspect]
     Indication: NERVE INJURY
     Dosage: 150 MG, 2X/DAY
  3. LIPITOR [Suspect]
     Indication: BLOOD CHOLESTEROL INCREASED
     Dosage: 20 MG, DAILY
  4. NORCO [Concomitant]
     Indication: PAIN
     Dosage: UNK
  5. LYRICA [Suspect]
     Indication: BACK PAIN
  6. SYNTHROID [Concomitant]
     Indication: HYPOTHYROIDISM
     Dosage: 20 MG, DAILY
  7. MIRAPEX [Concomitant]
     Indication: RESTLESS LEGS SYNDROME
     Dosage: UNK

REACTIONS (14)
  - OEDEMA PERIPHERAL [None]
  - JOINT SWELLING [None]
  - HAEMOGLOBIN DECREASED [None]
  - CONTUSION [None]
  - GAIT DISTURBANCE [None]
  - ARTHRALGIA [None]
  - MUSCLE STRAIN [None]
  - SOMNOLENCE [None]
  - VASCULAR RUPTURE [None]
  - MASTICATION DISORDER [None]
  - THROMBOSIS [None]
  - FALL [None]
  - TOOTH INFECTION [None]
  - SKIN LESION [None]
